FAERS Safety Report 9803505 (Version 2)
Quarter: 2014Q1

REPORT INFORMATION
  Report Type: Report from Study
  Country: DK (occurrence: DK)
  Receive Date: 20140108
  Receipt Date: 20140108
  Transmission Date: 20141002
  Serious: Yes (Hospitalization, Disabling, Other)
  Sender: FDA-Public Use
  Company Number: DK-BRISTOL-MYERS SQUIBB COMPANY-14953624

PATIENT
  Age: 45 Year
  Sex: Female

DRUGS (4)
  1. IPILIMUMAB [Suspect]
     Indication: MALIGNANT MELANOMA
     Dosage: 22DEC09: 790MG?15JAN10: 780MG?03FEB10: 0MG
     Route: 042
     Dates: start: 20091222, end: 20100115
  2. PARACETAMOL [Concomitant]
     Indication: PAIN
     Dates: start: 201002
  3. MORPHINE [Concomitant]
     Dates: start: 20100127
  4. CETIRIZINE [Concomitant]
     Dates: start: 20100127

REACTIONS (4)
  - Hyperthyroidism [Recovered/Resolved]
  - Neuroborreliosis [Not Recovered/Not Resolved]
  - Muscle spasms [Not Recovered/Not Resolved]
  - Peripheral sensory neuropathy [Not Recovered/Not Resolved]
